FAERS Safety Report 7681978-X (Version None)
Quarter: 2011Q3

REPORT INFORMATION
  Report Type: 
  Country: None (occurrence: None)
  Receive Date: 20110815
  Receipt Date: 20110808
  Transmission Date: 20111222
  Serious: No
  Sender: FDA-Public Use
  Company Number: US-BIOGENIDEC-2011BI030091

PATIENT
  Age: 44 Year
  Sex: Male

DRUGS (2)
  1. REBIF [Concomitant]
     Indication: MULTIPLE SCLEROSIS
  2. AVONEX [Suspect]
     Indication: MULTIPLE SCLEROSIS
     Route: 030
     Dates: start: 20070420

REACTIONS (5)
  - DIARRHOEA [None]
  - FEELING COLD [None]
  - WEIGHT DECREASED [None]
  - DECREASED APPETITE [None]
  - ASTHENIA [None]
